FAERS Safety Report 7978555-X (Version None)
Quarter: 2011Q4

REPORT INFORMATION
  Report Type: 
  Country: None (occurrence: None)
  Receive Date: 20111214
  Receipt Date: 20111207
  Transmission Date: 20120403
  Serious: Yes (Other)
  Sender: FDA-Public Use
  Company Number: AT-UCBSA-047307

PATIENT
  Age: 40 Year
  Sex: Female

DRUGS (1)
  1. VIMPAT [Suspect]
     Route: 048

REACTIONS (1)
  - ILEUS [None]
